FAERS Safety Report 7780798-5 (Version None)
Quarter: 2011Q3

REPORT INFORMATION
  Report Type: 
  Country: None (occurrence: None)
  Receive Date: 20110927
  Receipt Date: 20110921
  Transmission Date: 20111222
  Serious: No
  Sender: FDA-Public Use
  Company Number: US-PFIZER INC-2011225415

PATIENT
  Sex: Male
  Weight: 102 kg

DRUGS (7)
  1. SOTALOL [Concomitant]
     Dosage: 80 MG, UNK
  2. FINASTERIDE [Concomitant]
     Dosage: 5 MG, UNK
  3. KLOR-CON [Concomitant]
     Dosage: 20 MEQ, UNK
  4. AMLODIPINE [Concomitant]
     Dosage: 2.5 MG, UNK
  5. METOPROLOL [Concomitant]
     Dosage: 25 MG, UNK
  6. FUROSEMIDE [Concomitant]
     Dosage: 20 MG, UNK
  7. SUTENT [Suspect]
     Dosage: 50 MG, 1X/DAY
     Route: 048

REACTIONS (1)
  - DEHYDRATION [None]
